FAERS Safety Report 4850119-6 (Version None)
Quarter: 2005Q4

REPORT INFORMATION
  Report Type: 
  Country: None (occurrence: None)
  Receive Date: 20051123
  Receipt Date: 20050601
  Transmission Date: 20060501
  Serious: Yes (Hospitalization)
  Sender: FDA-Public Use
  Company Number: 2005050335

PATIENT
  Age: 81 Year
  Sex: Male
  Weight: 78.4723 kg

DRUGS (3)
  1. LIPITOR [Suspect]
     Indication: BLOOD CHOLESTEROL
     Dosage: ORAL
     Route: 048
  2. ALL OTHER THERAPEUTIC PRODUCTS (ALL OTHER THERAPEUTIC PRODUCTS) [Suspect]
     Indication: CONSTIPATION
  3. ZOCOR [Suspect]
     Indication: ILL-DEFINED DISORDER

REACTIONS (2)
  - CONSTIPATION [None]
  - DIARRHOEA [None]
